FAERS Safety Report 14159115 (Version 2)
Quarter: 2017Q4

REPORT INFORMATION
  Report Type: Spontaneous
  Country: GB (occurrence: GB)
  Receive Date: 20171106
  Receipt Date: 20171110
  Transmission Date: 20180321
  Serious: No
  Sender: FDA-Public Use
  Company Number: GB-ASTRAZENECA-2017SF11645

PATIENT
  Age: 54 Year
  Sex: Female

DRUGS (6)
  1. RANITIDINE. [Concomitant]
     Active Substance: RANITIDINE
  2. APIXABAN [Concomitant]
     Active Substance: APIXABAN
  3. ZOPICLONE [Concomitant]
     Active Substance: ZOPICLONE
  4. LYNPARZA [Suspect]
     Active Substance: OLAPARIB
     Indication: OVARIAN CANCER
     Route: 048
     Dates: start: 20170307
  5. ATORVASTATIN [Concomitant]
     Active Substance: ATORVASTATIN
  6. FEXOFENADINE [Concomitant]
     Active Substance: FEXOFENADINE\FEXOFENADINE HYDROCHLORIDE

REACTIONS (2)
  - Vision blurred [Not Recovered/Not Resolved]
  - Off label use [Unknown]

NARRATIVE: CASE EVENT DATE: 20170307
